FAERS Safety Report 4579135-9 (Version None)
Quarter: 2005Q1

REPORT INFORMATION
  Report Type: 
  Country: None (occurrence: None)
  Receive Date: 20050121
  Receipt Date: 20040610
  Transmission Date: 20050727
  Serious: Yes (Life-Threatening)
  Sender: FDA-Public Use
  Company Number: STA-AE-04-MTX-259

PATIENT
  Age: 69 Year
  Sex: Male
  Weight: 84.8226 kg

DRUGS (3)
  1. METHOTREXATE [Suspect]
     Indication: PITYRIASIS RUBRA PILARIS
     Dosage: 15 MG WEEKLY, ORAL
     Route: 048
     Dates: start: 19910101, end: 19920101
  2. . [Concomitant]
  3. . [Concomitant]

REACTIONS (1)
  - PULMONARY FIBROSIS [None]
